FAERS Safety Report 24930111 (Version 1)
Quarter: 2025Q1

REPORT INFORMATION
  Report Type: Report from Study
  Country: CA (occurrence: CA)
  Receive Date: 20250205
  Receipt Date: 20250205
  Transmission Date: 20250409
  Serious: Yes (Hospitalization, Other)
  Sender: TAKEDA
  Company Number: CA-TAKEDA-2025TUS010971

PATIENT
  Sex: Male

DRUGS (3)
  1. VEDOLIZUMAB [Suspect]
     Active Substance: VEDOLIZUMAB
     Indication: Crohn^s disease
     Dates: start: 20230721, end: 20241220
  2. PREDNISONE [Concomitant]
     Active Substance: PREDNISONE
  3. MELATONIN [Concomitant]
     Active Substance: MELATONIN
     Dosage: UNK UNK, BID

REACTIONS (2)
  - Crohn^s disease [Unknown]
  - Treatment failure [Unknown]
